FAERS Safety Report 17201199 (Version 1)
Quarter: 2019Q4

REPORT INFORMATION
  Report Type: Spontaneous
  Country: JP (occurrence: JP)
  Receive Date: 20191226
  Receipt Date: 20191226
  Transmission Date: 20200122
  Serious: Yes (Other)
  Sender: FDA-Public Use
  Company Number: JP-PFIZER INC-2019547383

PATIENT
  Age: 66 Year
  Sex: Female

DRUGS (1)
  1. METHOTREXATE SODIUM. [Suspect]
     Active Substance: METHOTREXATE SODIUM
     Indication: RHEUMATOID ARTHRITIS
     Dosage: UNK

REACTIONS (3)
  - Metastases to central nervous system [Recovered/Resolved]
  - Ocular lymphoma [Recovered/Resolved]
  - Lymphoproliferative disorder [Recovered/Resolved]

NARRATIVE: CASE EVENT DATE: 201703
